FAERS Safety Report 12328251 (Version 1)
Quarter: 2016Q2

REPORT INFORMATION
  Report Type: Other
  Country: GB (occurrence: GB)
  Receive Date: 20160503
  Receipt Date: 20160503
  Transmission Date: 20160815
  Serious: Yes (Other)
  Sender: FDA-Public Use
  Company Number: GB-ASTELLAS-2016US016411

PATIENT
  Age: 70 Year
  Sex: Male
  Weight: 64 kg

DRUGS (4)
  1. BETMIGA [Suspect]
     Active Substance: MIRABEGRON
     Indication: POSTOPERATIVE CARE
  2. BECONASE AQ [Concomitant]
     Active Substance: BECLOMETHASONE DIPROPIONATE MONOHYDRATE
     Indication: RHINITIS
     Dosage: UNK UNK, UNKNOWN FREQ.
     Route: 065
  3. BETMIGA [Suspect]
     Active Substance: MIRABEGRON
     Indication: PREOPERATIVE CARE
     Route: 048
     Dates: start: 20131112, end: 20160414
  4. BETMIGA [Suspect]
     Active Substance: MIRABEGRON
     Indication: HYPERTONIC BLADDER

REACTIONS (2)
  - Angioedema [Recovered/Resolved]
  - Pain in jaw [Not Recovered/Not Resolved]

NARRATIVE: CASE EVENT DATE: 20160323
